FAERS Safety Report 6760629-2 (Version None)
Quarter: 2010Q2

REPORT INFORMATION
  Report Type: 
  Country: None (occurrence: None)
  Receive Date: 20100608
  Receipt Date: 20100527
  Transmission Date: 20101027
  Serious: Yes (Hospitalization)
  Sender: FDA-Public Use
  Company Number: US-PFIZER INC-2010067551

PATIENT

DRUGS (1)
  1. TIKOSYN [Suspect]

REACTIONS (2)
  - BACK PAIN [None]
  - INFECTION [None]
